FAERS Safety Report 4314213-0 (Version None)
Quarter: 2004Q1

REPORT INFORMATION
  Report Type: 
  Country: None (occurrence: None)
  Receive Date: 20040304
  Receipt Date: 20030404
  Transmission Date: 20041129
  Serious: No
  Sender: FDA-Public Use
  Company Number: 200536

PATIENT
  Age: 48 Year
  Sex: Female

DRUGS (1)
  1. NUTROPIN AQ [Suspect]
     Indication: DRUG USE FOR UNKNOWN INDICATION

REACTIONS (1)
  - CARPAL TUNNEL SYNDROME [None]
